FAERS Safety Report 4362179-X (Version None)
Quarter: 2004Q2

REPORT INFORMATION
  Report Type: 
  Country: None (occurrence: None)
  Receive Date: 20040517
  Receipt Date: 20040503
  Transmission Date: 20050107
  Serious: No
  Sender: FDA-Public Use
  Company Number: TPA2004A00292

PATIENT
  Age: 62 Year
  Sex: Male

DRUGS (6)
  1. ACTOS [Suspect]
     Indication: DIABETES MELLITUS
     Dosage: PER ORAL
     Route: 048
  2. UNKNOWN ORAL AGENT (ORAL ANTIDIABETICS) [Concomitant]
  3. PRINIVIL [Concomitant]
  4. ASPIRN (ACETYLSALICYLIC ACID) [Concomitant]
  5. LASIX [Concomitant]
  6. UNKNOWN ANTIHYPERTENSIVE (ANTIHYPERTENSIVES) [Concomitant]

REACTIONS (10)
  - MACULAR OEDEMA [None]
  - NEOVASCULARISATION [None]
  - OEDEMA PERIPHERAL [None]
  - RETINAL EXUDATES [None]
  - RETINAL MICROANEURYSMS [None]
  - RETINOPATHY PROLIFERATIVE [None]
  - SWELLING FACE [None]
  - VISUAL ACUITY REDUCED [None]
  - VITREOUS FLOATERS [None]
  - VITREOUS HAEMORRHAGE [None]
